FAERS Safety Report 9501112 (Version 1)
Quarter: 2013Q3

REPORT INFORMATION
  Report Type: Report from Study
  Country: JP (occurrence: JP)
  Receive Date: 20130905
  Receipt Date: 20130905
  Transmission Date: 20140515
  Serious: Yes (Other)
  Sender: FDA-Public Use
  Company Number: JP-AMGEN-JPNCT2013062194

PATIENT
  Age: 67 Year
  Sex: Female

DRUGS (2)
  1. DENOSUMAB [Suspect]
     Indication: BONE GIANT CELL TUMOUR
     Dosage: UNK
     Route: 065
     Dates: start: 20120210
  2. CEFDITOREN PIVOXIL [Concomitant]
     Dosage: 200 MG, TID
     Dates: start: 20130208

REACTIONS (1)
  - Exposed bone in jaw [Not Recovered/Not Resolved]
